FAERS Safety Report 21121859 (Version 1)
Quarter: 2022Q3

REPORT INFORMATION
  Report Type: Spontaneous
  Country: CN (occurrence: CN)
  Receive Date: 20220722
  Receipt Date: 20220722
  Transmission Date: 20221026
  Serious: Yes (Hospitalization, Other)
  Sender: FDA-Public Use
  Company Number: CN-009507513-2207CHN006186

PATIENT
  Age: 0 Year
  Sex: Male
  Weight: 65 kg

DRUGS (1)
  1. CILASTATIN SODIUM\IMIPENEM [Suspect]
     Active Substance: CILASTATIN SODIUM\IMIPENEM
     Indication: Anti-infective therapy
     Dosage: 0.5G, QID, PUMP INJECTION
     Dates: start: 20220405, end: 20220425

REACTIONS (3)
  - Seizure [Recovered/Resolved]
  - Faeces discoloured [Unknown]
  - Chest discomfort [Unknown]

NARRATIVE: CASE EVENT DATE: 20220423
